FAERS Safety Report 12473963 (Version 3)
Quarter: 2016Q3

REPORT INFORMATION
  Report Type: Spontaneous
  Country: JP (occurrence: JP)
  Receive Date: 20160616
  Receipt Date: 20160705
  Transmission Date: 20161109
  Serious: Yes (Hospitalization, Other)
  Sender: FDA-Public Use
  Company Number: JP-TAKEDA-2016MPI005555

PATIENT
  Age: 70 Year
  Sex: Female
  Weight: 59.3 kg

DRUGS (116)
  1. GRAN [Concomitant]
     Active Substance: FILGRASTIM
     Indication: NEUTROPHIL COUNT DECREASED
     Dosage: 75 ?G, UNK
     Route: 042
     Dates: start: 20160406, end: 20160406
  2. ZOLPIDEM TARTRATE. [Concomitant]
     Active Substance: ZOLPIDEM TARTRATE
     Dosage: 5 MG, UNK
     Route: 048
     Dates: start: 20160411, end: 20160515
  3. BAROS ANTIFOAMING [Concomitant]
     Indication: COLONOSCOPY
     Dosage: 5 ML, UNK
     Route: 048
     Dates: start: 20160411, end: 20160411
  4. ZOMETA [Concomitant]
     Active Substance: ZOLEDRONIC ACID
     Indication: PLASMA CELL MYELOMA
     Dosage: 3.3 MG, UNK
     Route: 042
     Dates: start: 20160405, end: 20160405
  5. NIFLEC [Concomitant]
     Active Substance: BICARBONATE ION\POLYETHYLENE GLYCOLS\POTASSIUM CATION\SODIUM CHLORIDE\SODIUM SULFATE ANHYDROUS
     Indication: COLONOSCOPY
     Dosage: UNK
     Route: 048
     Dates: start: 20160323, end: 20160323
  6. ATARAX [Concomitant]
     Active Substance: HYDROXYZINE\HYDROXYZINE HYDROCHLORIDE
     Indication: SPINAL COMPRESSION FRACTURE
     Dosage: 2.5 MG, UNK
     Route: 042
     Dates: start: 20160411, end: 20160413
  7. ZOSYN [Concomitant]
     Active Substance: PIPERACILLIN SODIUM\TAZOBACTAM SODIUM
     Indication: PROPHYLAXIS
     Dosage: 4.5 MG, UNK
     Route: 042
     Dates: start: 20160412, end: 20160412
  8. FAMOTIDINE. [Concomitant]
     Active Substance: FAMOTIDINE
     Indication: GASTRITIS
     Dosage: 20 MG, UNK
     Route: 048
     Dates: start: 20160412
  9. BAROS ANTIFOAMING [Concomitant]
     Indication: ENDOSCOPY UPPER GASTROINTESTINAL TRACT
     Dosage: 5 ML, UNK
     Route: 048
     Dates: start: 20160323, end: 20160323
  10. ANETOCAINE [Concomitant]
     Indication: COLONOSCOPY
     Dosage: 30 ML, UNK
     Route: 050
     Dates: start: 20160411, end: 20160411
  11. TERPERAN [Concomitant]
     Active Substance: METOCLOPRAMIDE HYDROCHLORIDE
     Indication: VOMITING
     Dosage: 5 MG, TID
     Route: 048
     Dates: start: 20160329, end: 20160402
  12. TERPERAN [Concomitant]
     Active Substance: METOCLOPRAMIDE HYDROCHLORIDE
     Dosage: UNK
     Route: 048
  13. METHYCOBAL [Concomitant]
     Active Substance: METHYLCOBALAMIN
     Indication: VITAMIN B12 DECREASED
     Dosage: 0.5 MG, UNK
     Route: 042
     Dates: start: 20160405, end: 20160405
  14. LOPERAMIDE [Concomitant]
     Active Substance: LOPERAMIDE
     Dosage: 1 MG, TID
     Route: 048
     Dates: start: 20160501, end: 20160503
  15. SOLDEM 1 [Concomitant]
     Active Substance: DEXTROSE\SODIUM CHLORIDE\SODIUM LACTATE
     Indication: OESOPHAGEAL RUPTURE
     Dosage: 500 ML, UNK
     Route: 042
     Dates: start: 20160409, end: 20160410
  16. GLUCOSE [Concomitant]
     Active Substance: DEXTROSE
     Indication: OESOPHAGEAL RUPTURE
     Dosage: 40 ML, BID
     Route: 042
     Dates: start: 20160410, end: 20160410
  17. BUSCOPAN [Concomitant]
     Active Substance: BUTYLSCOPOLAMINE BROMIDE
     Indication: DIARRHOEA
     Dosage: 20 MG, UNK
     Route: 042
     Dates: start: 20160411, end: 20160411
  18. ARCRANE [Concomitant]
     Indication: OESOPHAGEAL RUPTURE
     Dosage: 5 ML, TID
     Route: 048
     Dates: start: 20160409, end: 20160411
  19. SAXIZON [Concomitant]
     Active Substance: HYDROCORTISONE SODIUM SUCCINATE
     Indication: RASH
     Dosage: 100 MG, UNK
     Route: 042
     Dates: start: 20160425, end: 20160425
  20. SAXIZON [Concomitant]
     Active Substance: HYDROCORTISONE SODIUM SUCCINATE
     Dosage: 100 MG, UNK
     Route: 042
     Dates: start: 20160428, end: 20160429
  21. ZOSYN [Concomitant]
     Active Substance: PIPERACILLIN SODIUM\TAZOBACTAM SODIUM
     Indication: FEBRILE NEUTROPENIA
     Dosage: 4.5 MG, UNK
     Route: 042
     Dates: start: 20160428, end: 20160429
  22. TRAMAL [Concomitant]
     Active Substance: TRAMADOL
     Indication: SPINAL COMPRESSION FRACTURE
     Dosage: 25 MG, UNK
     Route: 048
     Dates: start: 20160411, end: 20160411
  23. CALCIUM LACTATE [Concomitant]
     Active Substance: CALCIUM LACTATE
     Indication: PROPHYLAXIS
     Dosage: 1 G, TID
     Route: 048
     Dates: start: 20160413, end: 20160515
  24. LAC-B [Concomitant]
     Active Substance: BIFIDOBACTERIUM SPP.
     Indication: GASTRITIS
     Dosage: 1 G, TID
     Route: 048
     Dates: start: 20160414
  25. FUROSEMIDE. [Concomitant]
     Active Substance: FUROSEMIDE
     Indication: OEDEMA PERIPHERAL
     Dosage: 20 MG, UNK
     Route: 048
     Dates: start: 20160515, end: 20160518
  26. ALBUMIN HUMAN [Concomitant]
     Active Substance: ALBUMIN HUMAN
     Indication: HYPOALBUMINAEMIA
     Dosage: 12.5 MG, UNK
     Route: 042
     Dates: start: 20160526, end: 20160526
  27. GRAN [Concomitant]
     Active Substance: FILGRASTIM
     Dosage: 150 ?G, UNK
     Route: 042
     Dates: start: 20160410, end: 20160413
  28. GRAN [Concomitant]
     Active Substance: FILGRASTIM
     Dosage: 75 ?G, UNK
     Route: 042
     Dates: start: 20160522, end: 20160522
  29. AMLODIPINE [Concomitant]
     Active Substance: AMLODIPINE BESYLATE
     Indication: HYPERTENSION
     Dosage: 10 MG, UNK
     Route: 048
     Dates: end: 20160409
  30. CALONAL [Concomitant]
     Active Substance: ACETAMINOPHEN
     Indication: PNEUMONIA
     Dosage: 400 MG, UNK
     Route: 048
     Dates: start: 20160518
  31. LOXOPROFEN SODIUM [Concomitant]
     Active Substance: LOXOPROFEN SODIUM
     Dosage: 60 MG, UNK
     Route: 048
     Dates: start: 20160413, end: 20160506
  32. LOPERAMIDE [Concomitant]
     Active Substance: LOPERAMIDE
     Indication: PROPHYLAXIS
     Dosage: 1 G, UNK
     Route: 048
     Dates: start: 20160409, end: 20160409
  33. OMEPRAZOLE. [Concomitant]
     Active Substance: OMEPRAZOLE
     Indication: OESOPHAGEAL RUPTURE
     Dosage: 20 MG, BID
     Route: 042
     Dates: start: 20160409, end: 20160411
  34. SAXIZON [Concomitant]
     Active Substance: HYDROCORTISONE SODIUM SUCCINATE
     Dosage: 40 MG, UNK
     Route: 042
     Dates: start: 20160522, end: 20160529
  35. POLARAMINE [Concomitant]
     Active Substance: DEXCHLORPHENIRAMINE MALEATE
     Indication: PROPHYLAXIS
     Dosage: 5 MG, UNK
     Route: 042
     Dates: start: 20160419, end: 20160419
  36. ZOSYN [Concomitant]
     Active Substance: PIPERACILLIN SODIUM\TAZOBACTAM SODIUM
     Dosage: 4.5 MG, UNK
     Route: 042
     Dates: start: 20160520, end: 20160520
  37. ZOSYN [Concomitant]
     Active Substance: PIPERACILLIN SODIUM\TAZOBACTAM SODIUM
     Dosage: 4.5 MG, UNK
     Route: 042
     Dates: start: 20160521, end: 20160521
  38. URSODEOXYCHOLIC ACID [Concomitant]
     Active Substance: URSODIOL
     Indication: ALANINE AMINOTRANSFERASE INCREASED
  39. SOLDEM 3A [Concomitant]
     Active Substance: CARBOHYDRATES\POTASSIUM CHLORIDE\SODIUM CHLORIDE\SODIUM LACTATE
     Indication: DIARRHOEA
     Dosage: 500 ML, UNK
     Route: 042
     Dates: start: 20160429, end: 20160429
  40. XYZAL [Concomitant]
     Active Substance: LEVOCETIRIZINE DIHYDROCHLORIDE
     Indication: RASH
     Dosage: 5 MG, UNK
     Route: 048
     Dates: start: 20160502, end: 20160508
  41. PREDONINE [Concomitant]
     Active Substance: PREDNISOLONE\PREDNISOLONE ACETATE\PREDNISOLONE SODIUM SUCCINATE
     Indication: RASH
     Dosage: 10 MG, UNK
     Route: 048
     Dates: start: 20160502, end: 20160508
  42. MICARDIS [Concomitant]
     Active Substance: TELMISARTAN
     Indication: HYPERTENSION
     Dosage: 40 MG, UNK
     Route: 048
     Dates: start: 20160531
  43. VELCADE [Suspect]
     Active Substance: BORTEZOMIB
     Indication: PLASMA CELL MYELOMA
     Dosage: 2 MG, UNK
     Route: 058
     Dates: start: 20160328, end: 20160509
  44. DIQUAS [Concomitant]
     Active Substance: DIQUAFOSOL TETRASODIUM
     Indication: DRY EYE
     Dosage: 1 GTT, UNK
     Route: 047
  45. GRAN [Concomitant]
     Active Substance: FILGRASTIM
     Dosage: 150 ?G, UNK
     Route: 042
     Dates: start: 20160409, end: 20160410
  46. GRAN [Concomitant]
     Active Substance: FILGRASTIM
     Dosage: 150 ?G, UNK
     Route: 042
     Dates: start: 20160420, end: 20160422
  47. GRAN [Concomitant]
     Active Substance: FILGRASTIM
     Dosage: 75 ?G, UNK
     Route: 042
     Dates: start: 20160524, end: 20160525
  48. IRBESARTAN. [Concomitant]
     Active Substance: IRBESARTAN
     Indication: HYPERTENSION
     Dosage: 100 MG, UNK
     Route: 048
     Dates: end: 20160409
  49. AMLODIPINE [Concomitant]
     Active Substance: AMLODIPINE BESYLATE
     Dosage: 10 MG, UNK
     Route: 048
     Dates: start: 20160412, end: 20160515
  50. DEPAS [Concomitant]
     Active Substance: ETIZOLAM
     Indication: ANXIETY
     Dosage: 0.5 MG, UNK
     Route: 048
     Dates: end: 20160317
  51. CALONAL [Concomitant]
     Active Substance: ACETAMINOPHEN
     Indication: PLASMA CELL MYELOMA
     Dosage: 400 MG, UNK
     Route: 048
     Dates: start: 20160322, end: 20160412
  52. SENNOSIDE [Concomitant]
     Active Substance: SENNOSIDES
     Indication: COLONOSCOPY
     Dosage: 24 MG, UNK
     Route: 048
     Dates: start: 20160322, end: 20160322
  53. BAKTAR [Concomitant]
     Active Substance: SULFAMETHOXAZOLE\TRIMETHOPRIM
     Indication: ANTIFUNGAL PROPHYLAXIS
     Dosage: UNK
     Route: 048
     Dates: start: 20160328, end: 20160409
  54. TERPERAN [Concomitant]
     Active Substance: METOCLOPRAMIDE HYDROCHLORIDE
     Dosage: 5 MG, UNK
     Route: 048
     Dates: start: 20160428, end: 20160429
  55. TERPERAN [Concomitant]
     Active Substance: METOCLOPRAMIDE HYDROCHLORIDE
     Dosage: 5 MG, UNK
     Route: 048
     Dates: start: 20160508
  56. CALCICOL [Concomitant]
     Active Substance: CALCIUM GLUCONATE
     Indication: HYPOCALCAEMIA
     Dosage: 10 ML, UNK
     Route: 042
     Dates: start: 20160516, end: 20160516
  57. XYLOCAINE [Concomitant]
     Active Substance: LIDOCAINE HYDROCHLORIDE
     Indication: ENDOSCOPY UPPER GASTROINTESTINAL TRACT
     Dosage: 0.5 MG, UNK
     Route: 048
     Dates: start: 20160411, end: 20160411
  58. SAXIZON [Concomitant]
     Active Substance: HYDROCORTISONE SODIUM SUCCINATE
     Indication: PYREXIA
     Dosage: 100 MG, UNK
     Route: 042
     Dates: start: 20160414, end: 20160414
  59. ZOSYN [Concomitant]
     Active Substance: PIPERACILLIN SODIUM\TAZOBACTAM SODIUM
     Indication: PYREXIA
     Dosage: 4.5 MG, UNK
     Route: 042
     Dates: start: 20160413, end: 20160418
  60. XYZAL [Concomitant]
     Active Substance: LEVOCETIRIZINE DIHYDROCHLORIDE
     Dosage: 5 MG, UNK
     Route: 048
     Dates: start: 20160527
  61. MIYA-BM [Concomitant]
     Active Substance: CLOSTRIDIUM BUTYRICUM SPORES STRAIN M-55
     Indication: ANTIDIARRHOEAL SUPPORTIVE CARE
     Dosage: UNK, TID
     Route: 048
     Dates: start: 20160423
  62. CEFTRIAXONE SODIUM. [Concomitant]
     Active Substance: CEFTRIAXONE SODIUM
     Indication: PNEUMONIA
     Dosage: 2 G, UNK
     Route: 042
     Dates: start: 20160516, end: 20160516
  63. PREDNISOLONE. [Suspect]
     Active Substance: PREDNISOLONE
     Indication: PLASMA CELL MYELOMA
     Dosage: 90 MG, UNK
     Route: 048
     Dates: start: 20160328, end: 20160512
  64. GRAN [Concomitant]
     Active Substance: FILGRASTIM
     Dosage: 150 ?G, UNK
     Route: 042
     Dates: start: 20160413, end: 20160420
  65. IRBESARTAN. [Concomitant]
     Active Substance: IRBESARTAN
     Dosage: 100 MG, UNK
     Route: 048
     Dates: start: 20160412, end: 20160515
  66. ANETOCAINE [Concomitant]
     Indication: ENDOSCOPY UPPER GASTROINTESTINAL TRACT
     Dosage: 30 ML, UNK
     Route: 050
     Dates: start: 20160323, end: 20160323
  67. BAKTAR [Concomitant]
     Active Substance: SULFAMETHOXAZOLE\TRIMETHOPRIM
     Dosage: UNK
     Route: 048
     Dates: start: 20160411
  68. TERPERAN [Concomitant]
     Active Substance: METOCLOPRAMIDE HYDROCHLORIDE
     Dosage: 5 MG, TID
     Route: 048
     Dates: start: 20160429, end: 20160501
  69. LOPERAMIDE [Concomitant]
     Active Substance: LOPERAMIDE
     Dosage: 1 MG, BID
     Route: 048
     Dates: start: 20160430, end: 20160501
  70. SOLYUGEN F [Concomitant]
     Indication: OESOPHAGEAL RUPTURE
     Dosage: 500 ML, UNK
     Route: 042
     Dates: start: 20160409, end: 20160409
  71. SAXIZON [Concomitant]
     Active Substance: HYDROCORTISONE SODIUM SUCCINATE
     Indication: TRANSFUSION REACTION
     Dosage: 100 MG, UNK
     Route: 042
     Dates: start: 20160419, end: 20160419
  72. SAXIZON [Concomitant]
     Active Substance: HYDROCORTISONE SODIUM SUCCINATE
     Dosage: 100 MG, UNK
     Route: 042
     Dates: start: 20160501, end: 20160501
  73. DIFLUPREDNATE [Concomitant]
     Active Substance: DIFLUPREDNATE
     Indication: RASH
     Dosage: UNK
     Route: 061
     Dates: start: 20160428, end: 20160509
  74. ALFACALCIDOL [Concomitant]
     Active Substance: ALFACALCIDOL
     Dosage: 0.5 ?G, UNK
     Route: 048
     Dates: start: 20160522
  75. GRAN [Concomitant]
     Active Substance: FILGRASTIM
     Indication: PROPHYLAXIS
     Dosage: 75 ?G, UNK
     Route: 042
     Dates: start: 20160404, end: 20160404
  76. GRAN [Concomitant]
     Active Substance: FILGRASTIM
     Dosage: 75 ?G, UNK
     Route: 042
     Dates: start: 20160516, end: 20160516
  77. ZOLPIDEM TARTRATE. [Concomitant]
     Active Substance: ZOLPIDEM TARTRATE
     Indication: INSOMNIA
     Dosage: 5 MG, UNK
     Route: 048
     Dates: end: 20160409
  78. ACICLOVIR [Concomitant]
     Active Substance: ACYCLOVIR
     Indication: PROPHYLAXIS
     Dosage: 200 MG, UNK
     Route: 048
     Dates: start: 20160328, end: 20160409
  79. ACICLOVIR [Concomitant]
     Active Substance: ACYCLOVIR
     Dosage: 200 MG, UNK
     Route: 048
     Dates: start: 20160412
  80. RINDERON VG [Concomitant]
     Active Substance: BETAMETHASONE VALERATE\GENTAMICIN SULFATE
     Indication: INJECTION SITE ERYTHEMA
     Dosage: UNK
     Route: 061
     Dates: start: 20160409, end: 20160419
  81. BFLUID [Concomitant]
     Active Substance: AMINO ACIDS\DEXTROSE\ELECTROLYTES NOS\VITAMINS
     Indication: DIARRHOEA
     Dosage: 500 ML, TID
     Route: 042
     Dates: start: 20160411, end: 20160418
  82. POLARAMINE [Concomitant]
     Active Substance: DEXCHLORPHENIRAMINE MALEATE
     Indication: RASH
     Dosage: 100 MG, UNK
     Route: 042
     Dates: start: 20160415, end: 20160417
  83. POLARAMINE [Concomitant]
     Active Substance: DEXCHLORPHENIRAMINE MALEATE
     Dosage: 5 MG, UNK
     Route: 042
     Dates: start: 20160501, end: 20160501
  84. ZOSYN [Concomitant]
     Active Substance: PIPERACILLIN SODIUM\TAZOBACTAM SODIUM
     Dosage: 4.5 MG, UNK
     Route: 042
     Dates: start: 20160429, end: 20160502
  85. CEFEPIME HYDROCHLORIDE. [Concomitant]
     Active Substance: CEFEPIME HYDROCHLORIDE
     Indication: PNEUMONIA
     Dosage: 1 G, BID
     Route: 042
     Dates: start: 20160522, end: 20160526
  86. MELPHALAN [Suspect]
     Active Substance: MELPHALAN
     Indication: PLASMA CELL MYELOMA
     Dosage: 14 MG, UNK
     Route: 048
     Dates: start: 20160328, end: 20160512
  87. ETIZOLAM [Concomitant]
     Active Substance: ETIZOLAM
     Indication: ANXIETY
     Dosage: 0.5 MG, UNK
     Route: 048
     Dates: start: 20160328
  88. GRAN [Concomitant]
     Active Substance: FILGRASTIM
     Dosage: 150 ?G, UNK
     Route: 042
     Dates: start: 20160422, end: 20160428
  89. MIDAZOLAM [Concomitant]
     Active Substance: MIDAZOLAM\MIDAZOLAM HYDROCHLORIDE
     Indication: COLONOSCOPY
     Dosage: 30 MG, UNK
     Route: 042
     Dates: start: 20160323, end: 20160323
  90. MAGMITT [Concomitant]
     Active Substance: MAGNESIUM OXIDE
     Indication: CONSTIPATION PROPHYLAXIS
     Dosage: 500 MG, TID
     Route: 048
     Dates: start: 20160329, end: 20160404
  91. METHYCOBAL [Concomitant]
     Active Substance: METHYLCOBALAMIN
     Indication: PROPHYLAXIS
     Dosage: 0.5 MG, UNK
     Route: 042
     Dates: start: 20160405, end: 20160405
  92. LOPERAMIDE [Concomitant]
     Active Substance: LOPERAMIDE
     Indication: DIARRHOEA
     Dosage: 1 MG, BID
     Route: 048
     Dates: start: 20160423, end: 20160425
  93. CALCICOL [Concomitant]
     Active Substance: CALCIUM GLUCONATE
     Indication: PROPHYLAXIS
     Dosage: 5 ML, UNK
     Route: 042
     Dates: start: 20160411, end: 20160412
  94. CALCICOL [Concomitant]
     Active Substance: CALCIUM GLUCONATE
     Dosage: 10 ML, UNK
     Route: 042
     Dates: start: 20160520, end: 20160520
  95. POLARAMINE [Concomitant]
     Active Substance: DEXCHLORPHENIRAMINE MALEATE
     Indication: TRANSFUSION REACTION
     Dosage: 5 MG, UNK
     Route: 042
     Dates: start: 20160425, end: 20160425
  96. POLARAMINE [Concomitant]
     Active Substance: DEXCHLORPHENIRAMINE MALEATE
     Dosage: 5 MG, UNK
     Route: 042
     Dates: start: 20160530, end: 20160530
  97. URSODEOXYCHOLIC ACID [Concomitant]
     Active Substance: URSODIOL
     Indication: ASPARTATE AMINOTRANSFERASE INCREASED
     Dosage: 200 MG, TID
     Route: 048
     Dates: start: 20160413, end: 20160502
  98. GENINAX [Concomitant]
     Active Substance: GARENOXACIN MESYLATE
     Indication: PNEUMONIA
     Dosage: 400 MG, UNK
     Route: 048
     Dates: start: 20160516, end: 20160517
  99. ALFACALCIDOL [Concomitant]
     Active Substance: ALFACALCIDOL
     Indication: HYPOCALCAEMIA
     Dosage: 0.5 ?G, UNK
     Route: 048
     Dates: start: 20160521, end: 20160522
  100. FUROSEMIDE. [Concomitant]
     Active Substance: FUROSEMIDE
     Indication: GENERALISED OEDEMA
     Dosage: 2 ML, UNK
     Route: 042
     Dates: start: 20160522, end: 20160530
  101. LOXONIN [Concomitant]
     Active Substance: LOXOPROFEN SODIUM
     Indication: PLASMA CELL MYELOMA
     Dosage: UNK
     Route: 061
     Dates: start: 20160322
  102. GASTER [Concomitant]
     Active Substance: FAMOTIDINE
     Indication: GASTRITIS
     Dosage: 20 MG, UNK
     Route: 048
     Dates: end: 20160409
  103. TERPERAN [Concomitant]
     Active Substance: METOCLOPRAMIDE HYDROCHLORIDE
     Indication: PROPHYLAXIS OF NAUSEA AND VOMITING
     Dosage: 5 MG, TID
     Route: 048
     Dates: start: 20160423, end: 20160428
  104. PENTAZOCINE [Concomitant]
     Active Substance: PENTAZOCINE
     Indication: SPINAL COMPRESSION FRACTURE
     Dosage: 15 MG, UNK
     Route: 042
     Dates: start: 20160411, end: 20160413
  105. LOXOPROFEN SODIUM [Concomitant]
     Active Substance: LOXOPROFEN SODIUM
     Indication: SPINAL COMPRESSION FRACTURE
     Dosage: 60 MG, UNK
     Route: 048
     Dates: start: 20160411, end: 20160413
  106. LOXOPROFEN SODIUM [Concomitant]
     Active Substance: LOXOPROFEN SODIUM
     Dosage: 60 MG, UNK
     Route: 048
     Dates: start: 20160506
  107. HEPAFLUSH [Concomitant]
     Active Substance: HEPARIN SODIUM
     Indication: COAGULOPATHY
     Dosage: 10 ML, UNK
     Route: 042
     Dates: start: 20160409, end: 20160409
  108. BFLUID [Concomitant]
     Active Substance: AMINO ACIDS\DEXTROSE\ELECTROLYTES NOS\VITAMINS
     Indication: PROPHYLAXIS AGAINST DEHYDRATION
     Dosage: 500 ML, BID
     Route: 042
     Dates: start: 20160430, end: 20160501
  109. BFLUID [Concomitant]
     Active Substance: AMINO ACIDS\DEXTROSE\ELECTROLYTES NOS\VITAMINS
     Dosage: 500 ML, BID
     Route: 042
     Dates: start: 20160502, end: 20160502
  110. SAXIZON [Concomitant]
     Active Substance: HYDROCORTISONE SODIUM SUCCINATE
     Indication: PROPHYLAXIS
     Dosage: 100 MG, UNK
     Route: 042
     Dates: start: 20160415, end: 20160417
  111. SAXIZON [Concomitant]
     Active Substance: HYDROCORTISONE SODIUM SUCCINATE
     Dosage: 100 MG, UNK
     Route: 042
     Dates: start: 20160530, end: 20160530
  112. CALCIUM LACTATE [Concomitant]
     Active Substance: CALCIUM LACTATE
     Dosage: 1.5 G, TID
     Route: 048
     Dates: start: 20160516, end: 20160522
  113. CALCIUM LACTATE [Concomitant]
     Active Substance: CALCIUM LACTATE
     Dosage: 1.5 MG, UNK
     Route: 048
     Dates: start: 20160522
  114. DIFLUPREDNATE [Concomitant]
     Active Substance: DIFLUPREDNATE
     Dosage: UNK
     Route: 061
     Dates: start: 20160527
  115. FEBURIC [Concomitant]
     Active Substance: FEBUXOSTAT
     Indication: HYPERURICAEMIA
     Dosage: 10 MG, UNK
     Route: 048
     Dates: start: 20160428, end: 20160503
  116. LOCOID [Concomitant]
     Active Substance: HYDROCORTISONE BUTYRATE
     Indication: RASH
     Dosage: UNK
     Route: 061
     Dates: start: 20160527

REACTIONS (18)
  - Oesophageal rupture [Recovered/Resolved]
  - Hypoalbuminaemia [Unknown]
  - Hypocalcaemia [Unknown]
  - Aspartate aminotransferase increased [Unknown]
  - Diarrhoea [Unknown]
  - Generalised oedema [Unknown]
  - Cardiac failure [Recovered/Resolved]
  - Febrile neutropenia [Unknown]
  - Alanine aminotransferase increased [Unknown]
  - Oedema peripheral [Unknown]
  - Vomiting [Unknown]
  - Relapsing fever [Unknown]
  - Neutrophil count decreased [Unknown]
  - Injection site erythema [Unknown]
  - Pleural effusion [Unknown]
  - Spinal compression fracture [Recovered/Resolved]
  - Pneumonia [Unknown]
  - Rash [Unknown]

NARRATIVE: CASE EVENT DATE: 20160401
